FAERS Safety Report 26010250 (Version 2)
Quarter: 2025Q4

REPORT INFORMATION
  Report Type: Spontaneous
  Country: CN (occurrence: CN)
  Receive Date: 20251107
  Receipt Date: 20251125
  Transmission Date: 20260118
  Serious: Yes (Hospitalization)
  Sender: ACCORD
  Company Number: CN-Accord-511479

PATIENT
  Age: 57 Year
  Sex: Male

DRUGS (8)
  1. BORTEZOMIB [Suspect]
     Active Substance: BORTEZOMIB
     Indication: Plasma cell myeloma
     Route: 058
     Dates: start: 202010, end: 202110
  2. ANETUMAB [Suspect]
     Active Substance: ANETUMAB
     Indication: Plasma cell myeloma
     Dosage: CHEMOTHERAPY WITH BORTEZOMIB, DALETUMAB AND DEXAMETHASONE FOR EIGHT MONTHS
     Dates: start: 202207, end: 20230322
  3. DEXAMETHASONE [Suspect]
     Active Substance: DEXAMETHASONE
     Indication: Plasma cell myeloma
     Route: 048
     Dates: start: 202010, end: 202110
  4. LENALIDOMIDE [Suspect]
     Active Substance: LENALIDOMIDE
     Indication: Plasma cell myeloma
     Dosage: WITH BORTEZOMIB, LENALIDOMIDE, DEXAMETHASONE FOR ONE YEAR
     Dates: start: 202010, end: 202110
  5. DEXAMETHASONE [Suspect]
     Active Substance: DEXAMETHASONE
     Indication: Plasma cell myeloma
     Route: 048
     Dates: start: 202207, end: 20230322
  6. DEXAMETHASONE [Suspect]
     Active Substance: DEXAMETHASONE
     Indication: Plasma cell myeloma
     Route: 048
     Dates: start: 202110
  7. BORTEZOMIB [Suspect]
     Active Substance: BORTEZOMIB
     Indication: Plasma cell myeloma
     Route: 058
     Dates: start: 202207, end: 20230322
  8. BORTEZOMIB [Suspect]
     Active Substance: BORTEZOMIB
     Indication: Plasma cell myeloma
     Route: 058
     Dates: start: 202110

REACTIONS (4)
  - Thrombocytopenia [Recovered/Resolved]
  - Hepatitis G [Recovered/Resolved]
  - Listeria sepsis [Recovered/Resolved]
  - Meningitis listeria [Recovered/Resolved]

NARRATIVE: CASE EVENT DATE: 20230101
